FAERS Safety Report 14491370 (Version 1)
Quarter: 2018Q1

REPORT INFORMATION
  Report Type: Spontaneous
  Country: DE (occurrence: DE)
  Receive Date: 20180206
  Receipt Date: 20180206
  Transmission Date: 20180509
  Serious: Yes (Death, Other)
  Sender: FDA-Public Use
  Company Number: PHHY2018DE017049

PATIENT
  Age: 46 Year
  Sex: Female

DRUGS (3)
  1. METHADONE HYDROCHLORIDE. [Suspect]
     Active Substance: METHADONE HYDROCHLORIDE
     Indication: BREAST CANCER FEMALE
     Dosage: 2X15MG
     Route: 048
  2. METAMIZOL [Concomitant]
     Active Substance: METAMIZOLE SODIUM
     Indication: PAIN
     Dosage: EINMALIG
     Route: 048
  3. METHOTREXAT [Concomitant]
     Active Substance: METHOTREXATE
     Indication: BREAST CANCER FEMALE
     Route: 065

REACTIONS (6)
  - Respiratory depression [Unknown]
  - Somnolence [Unknown]
  - Death [Fatal]
  - Dyspnoea [Unknown]
  - Nausea [Unknown]
  - Hypoventilation [Unknown]

NARRATIVE: CASE EVENT DATE: 20170606
